FAERS Safety Report 11698130 (Version 1)
Quarter: 2015Q4

REPORT INFORMATION
  Report Type: Spontaneous
  Country: US (occurrence: US)
  Receive Date: 20151104
  Receipt Date: 20151104
  Transmission Date: 20160304
  Serious: No
  Sender: FDA-Public Use
  Company Number: US-MISSION PHARMACAL COMPANY-1043743

PATIENT
  Age: 16 Year
  Sex: Male

DRUGS (2)
  1. THIOLA [Concomitant]
     Active Substance: TIOPRONIN
     Route: 065
  2. THIOLA [Suspect]
     Active Substance: TIOPRONIN
     Indication: CYSTINURIA
     Route: 065

REACTIONS (1)
  - Vertigo [Unknown]
